FAERS Safety Report 13926022 (Version 6)
Quarter: 2018Q1

REPORT INFORMATION
  Report Type: Report from Study
  Country: US (occurrence: US)
  Receive Date: 20170831
  Receipt Date: 20180109
  Transmission Date: 20180508
  Serious: Yes (Hospitalization, Other)
  Sender: FDA-Public Use
  Company Number: US-ACTELION-A-US2017-153232

PATIENT
  Age: 73 Year
  Sex: Female
  Weight: 45.81 kg

DRUGS (8)
  1. OXYGEN. [Concomitant]
     Active Substance: OXYGEN
     Dosage: 4 L, UNK
  2. VELETRI [Suspect]
     Active Substance: EPOPROSTENOL
     Indication: PULMONARY ARTERIAL HYPERTENSION
     Dosage: 10 NG/KG, PER MIN
     Route: 042
  3. VELETRI [Suspect]
     Active Substance: EPOPROSTENOL
     Dosage: 18 NG/KG, PER MIN
     Route: 042
  4. SILDENAFIL. [Concomitant]
     Active Substance: SILDENAFIL
  5. UPTRAVI [Suspect]
     Active Substance: SELEXIPAG
     Indication: PULMONARY ARTERIAL HYPERTENSION
     Dosage: 1600 MCG, BID
     Route: 048
  6. UPTRAVI [Suspect]
     Active Substance: SELEXIPAG
     Dosage: 800 MCG, BID
     Route: 048
  7. VELETRI [Suspect]
     Active Substance: EPOPROSTENOL
     Dosage: 8 NG/KG, PER MIN
     Route: 042
  8. VELETRI [Suspect]
     Active Substance: EPOPROSTENOL
     Dosage: 19 NG/KG, PER MIN
     Route: 042

REACTIONS (25)
  - Gastrointestinal haemorrhage [Unknown]
  - Paracentesis [Unknown]
  - Weight increased [Unknown]
  - Feeling abnormal [Unknown]
  - Rash [Unknown]
  - Transfusion [Unknown]
  - Fluid overload [Unknown]
  - Hypotension [Unknown]
  - Diarrhoea [Unknown]
  - Nausea [Unknown]
  - Abdominal distension [Unknown]
  - Oedema [Unknown]
  - Dyspnoea [Unknown]
  - Dyspnoea exertional [Unknown]
  - Dizziness [Unknown]
  - Rectal haemorrhage [Unknown]
  - Haemoglobin decreased [Unknown]
  - Abdominal pain [Unknown]
  - Chest discomfort [Unknown]
  - Blood electrolytes abnormal [Unknown]
  - Fluid retention [Unknown]
  - Headache [Unknown]
  - Fatigue [Unknown]
  - Anaemia [Unknown]
  - Asthenia [Unknown]

NARRATIVE: CASE EVENT DATE: 201712
